FAERS Safety Report 6664555-9 (Version None)
Quarter: 2010Q2

REPORT INFORMATION
  Report Type: 
  Country: None (occurrence: None)
  Receive Date: 20100401
  Receipt Date: 20100318
  Transmission Date: 20101027
  Serious: No
  Sender: FDA-Public Use
  Company Number: US-B.I. PHARMACEUTICALS,INC./RIDGEFIELD-2010-BP-02154BP

PATIENT
  Sex: Male

DRUGS (3)
  1. SPIRIVA [Suspect]
     Indication: CHRONIC OBSTRUCTIVE PULMONARY DISEASE
     Dosage: 18 MCG
     Route: 055
     Dates: start: 20100119
  2. CLONIDINE [Concomitant]
     Indication: HYPERTENSION
  3. VITAMINS [Concomitant]
     Indication: SUPPLEMENTATION THERAPY

REACTIONS (5)
  - DRUG INEFFECTIVE [None]
  - DYSPNOEA [None]
  - OXYGEN SATURATION DECREASED [None]
  - PHARYNGEAL DISORDER [None]
  - TONGUE DISORDER [None]
